FAERS Safety Report 11820485 (Version 1)
Quarter: 2015Q4

REPORT INFORMATION
  Report Type: Spontaneous
  Country: US (occurrence: US)
  Receive Date: 20151210
  Receipt Date: 20151210
  Transmission Date: 20160305
  Serious: No
  Sender: FDA-Public Use
  Company Number: US-JNJFOC-20150516677

PATIENT
  Age: 52 Year
  Sex: Female

DRUGS (9)
  1. IMBRUVICA [Suspect]
     Active Substance: IBRUTINIB
     Indication: CHRONIC LYMPHOCYTIC LEUKAEMIA
     Dosage: CUMULATIVE DOSE= 840 MG??EXPDT=01-OCT-2015
     Route: 048
     Dates: start: 20150508, end: 20150511
  2. OMEPRAZOLE. [Concomitant]
     Active Substance: OMEPRAZOLE
  3. IRON [Concomitant]
     Active Substance: IRON
  4. SINGULAIR [Concomitant]
     Active Substance: MONTELUKAST SODIUM
  5. VERAPAMIL [Concomitant]
     Active Substance: VERAPAMIL HYDROCHLORIDE
  6. CALCIUM [Concomitant]
     Active Substance: CALCIUM
  7. TRIAMTERENE. [Concomitant]
     Active Substance: TRIAMTERENE
  8. ALLOPURINOL. [Concomitant]
     Active Substance: ALLOPURINOL
  9. MAGNESIUM [Concomitant]
     Active Substance: MAGNESIUM

REACTIONS (7)
  - Hand deformity [Recovering/Resolving]
  - Incorrect dose administered [Recovered/Resolved]
  - Pain in extremity [Unknown]
  - Peripheral swelling [Recovering/Resolving]
  - Palmar erythema [Recovering/Resolving]
  - Bone pain [Unknown]
  - Movement disorder [Recovering/Resolving]

NARRATIVE: CASE EVENT DATE: 20150508
